FAERS Safety Report 16927921 (Version 1)
Quarter: 2019Q4

REPORT INFORMATION
  Report Type: Spontaneous
  Country: GB (occurrence: GB)
  Receive Date: 20191017
  Receipt Date: 20191017
  Transmission Date: 20200122
  Serious: Yes (Other)
  Sender: FDA-Public Use
  Company Number: GB-MICRO LABS LIMITED-ML2019-02710

PATIENT
  Age: 78 Year
  Sex: Male
  Weight: 86 kg

DRUGS (7)
  1. ATORVASTATIN [Concomitant]
     Active Substance: ATORVASTATIN
     Dates: start: 20190905
  2. METFORMIN [Concomitant]
     Active Substance: METFORMIN HYDROCHLORIDE
     Dates: start: 20190513
  3. RAMIPRIL. [Concomitant]
     Active Substance: RAMIPRIL
     Dates: start: 20190513
  4. BENDROFLUMETHIAZIDE [Concomitant]
     Active Substance: BENDROFLUMETHIAZIDE
     Dosage: MORNING.
     Dates: start: 20190513
  5. SIMVASTATIN. [Suspect]
     Active Substance: SIMVASTATIN
     Dosage: NIGHT.
     Dates: start: 20190513
  6. LANTUS [Concomitant]
     Active Substance: INSULIN GLARGINE
     Dosage: ADJUST DOSE AS ADVISED.
     Dates: start: 20190513
  7. DUTASTERIDE. [Concomitant]
     Active Substance: DUTASTERIDE
     Dates: start: 20190513

REACTIONS (1)
  - Abnormal sleep-related event [Recovered/Resolved]
